FAERS Safety Report 16066939 (Version 2)
Quarter: 2019Q1

REPORT INFORMATION
  Report Type: Spontaneous
  Country: PT (occurrence: PT)
  Receive Date: 20190313
  Receipt Date: 20190319
  Transmission Date: 20190418
  Serious: Yes (Other)
  Sender: FDA-Public Use
  Company Number: PT-MYLANLABS-2019M1022795

PATIENT
  Age: 87 Year
  Sex: Female

DRUGS (7)
  1. ATAZANAVIR W/RITONAVIR [Suspect]
     Active Substance: ATAZANAVIR\RITONAVIR
     Indication: HIV-2 INFECTION
     Dosage: UNK
     Route: 065
     Dates: start: 2004
  2. ZIDOVUDINE. [Suspect]
     Active Substance: ZIDOVUDINE
     Indication: HIV-2 INFECTION
     Dosage: UNK
     Route: 065
     Dates: start: 2004
  3. TENOFOVIR DISOPROXIL FUMARATE. [Suspect]
     Active Substance: TENOFOVIR DISOPROXIL FUMARATE
     Indication: HIV INFECTION
     Dosage: UNK
  4. TENOFOVIR [Suspect]
     Active Substance: TENOFOVIR
     Indication: HIV-2 INFECTION
     Dosage: UNK
     Route: 065
     Dates: start: 2004
  5. LAMIVUDINE. [Suspect]
     Active Substance: LAMIVUDINE
     Dosage: UNK
     Route: 065
     Dates: start: 2004
  6. LOPINAVIR/RITONAVIR [Suspect]
     Active Substance: LOPINAVIR\RITONAVIR
     Indication: HIV-2 INFECTION
     Dosage: UNK
     Route: 065
     Dates: start: 2004
  7. LAMIVUDINE. [Suspect]
     Active Substance: LAMIVUDINE
     Indication: HIV-2 INFECTION
     Dosage: UNK
     Route: 065

REACTIONS (4)
  - Chronic kidney disease [Unknown]
  - Inappropriate schedule of product administration [Unknown]
  - Intentional product misuse [Unknown]
  - Off label use [Recovered/Resolved]
